FAERS Safety Report 18082651 (Version 2)
Quarter: 2020Q3

REPORT INFORMATION
  Report Type: Spontaneous
  Country: US (occurrence: US)
  Receive Date: 20200728
  Receipt Date: 20200813
  Transmission Date: 20201103
  Serious: No
  Sender: FDA-Public Use
  Company Number: US-ELI_LILLY_AND_COMPANY-US202007006408

PATIENT
  Sex: Female

DRUGS (1)
  1. EMGALITY [Suspect]
     Active Substance: GALCANEZUMAB-GNLM
     Indication: PRODUCT USED FOR UNKNOWN INDICATION
     Dosage: 2 DOSAGE FORM, UNKNOWN
     Route: 065

REACTIONS (18)
  - Pruritus [Unknown]
  - Abdominal discomfort [Unknown]
  - Anxiety [Unknown]
  - Gait disturbance [Unknown]
  - Dyspnoea [Unknown]
  - Injection site pain [Unknown]
  - Migraine [Unknown]
  - Pyrexia [Unknown]
  - Injection site injury [Unknown]
  - Urticaria [Unknown]
  - Mobility decreased [Unknown]
  - Blood blister [Unknown]
  - Injection site swelling [Unknown]
  - Diarrhoea [Unknown]
  - Injection site pruritus [Unknown]
  - Pharyngeal swelling [Unknown]
  - Injection site haemorrhage [Unknown]
  - Vomiting [Unknown]
